FAERS Safety Report 12001395 (Version 4)
Quarter: 2016Q1

REPORT INFORMATION
  Report Type: Spontaneous
  Country: US (occurrence: US)
  Receive Date: 20160204
  Receipt Date: 20160212
  Transmission Date: 20160526
  Serious: Yes (Hospitalization, Other)
  Sender: FDA-Public Use
  Company Number: US-PFIZER INC-2016050246

PATIENT
  Age: 55 Year
  Sex: Male
  Weight: 89.8 kg

DRUGS (49)
  1. ZOLOFT [Concomitant]
     Active Substance: SERTRALINE HYDROCHLORIDE
     Indication: DEPRESSION
     Dosage: 100 MG, (AT BED TIME)
     Route: 048
     Dates: start: 2001
  2. OXYCET [Concomitant]
     Active Substance: ACETAMINOPHEN\OXYCODONE HYDROCHLORIDE
     Dosage: UNK
     Dates: start: 201205, end: 201304
  3. KLOR-CON [Concomitant]
     Active Substance: POTASSIUM CHLORIDE
     Indication: BLOOD POTASSIUM
     Dosage: UNK
     Dates: start: 2013
  4. PROLIA [Concomitant]
     Active Substance: DENOSUMAB
     Dosage: UNK
     Dates: start: 2014, end: 2015
  5. LEVAQUIN [Concomitant]
     Active Substance: LEVOFLOXACIN
     Dosage: UNK
  6. PROTONIX [Concomitant]
     Active Substance: PANTOPRAZOLE SODIUM
     Indication: GASTROOESOPHAGEAL REFLUX DISEASE
     Dosage: 1 DF, 1X/DAY
     Dates: start: 200912
  7. AZITHROMYCIN ANHYDROUS. [Concomitant]
     Active Substance: AZITHROMYCIN ANHYDROUS
     Dosage: UNK
  8. DUONEB [Concomitant]
     Active Substance: ALBUTEROL SULFATE\IPRATROPIUM BROMIDE
     Dosage: UNK
  9. KEFLEX [Concomitant]
     Active Substance: CEPHALEXIN
     Dosage: UNK
  10. FOSAMAX [Concomitant]
     Active Substance: ALENDRONATE SODIUM
     Dosage: UNK
  11. ZOLOFT [Concomitant]
     Active Substance: SERTRALINE HYDROCHLORIDE
     Indication: ANXIETY
  12. VIAGRA [Concomitant]
     Active Substance: SILDENAFIL CITRATE
     Dosage: UNK
     Dates: start: 200810, end: 201011
  13. TRAZODONE [Concomitant]
     Active Substance: TRAZODONE HYDROCHLORIDE
     Indication: DEPRESSION
     Dosage: UNK
     Dates: start: 2009
  14. CLONAZEPAM. [Concomitant]
     Active Substance: CLONAZEPAM
     Indication: ANXIETY
     Dosage: UNK
  15. SYMBICORT [Concomitant]
     Active Substance: BUDESONIDE\FORMOTEROL FUMARATE DIHYDRATE
  16. JANUMET [Concomitant]
     Active Substance: METFORMIN HYDROCHLORIDE\SITAGLIPTIN PHOSPHATE
     Dosage: UNK
  17. ANDROGEL [Suspect]
     Active Substance: TESTOSTERONE
     Indication: HORMONE REPLACEMENT THERAPY
     Dosage: UNK
     Route: 061
     Dates: start: 200810, end: 201001
  18. BULTALB [Concomitant]
     Indication: PAIN
     Dosage: UNK
     Dates: start: 201205, end: 201212
  19. CLONAZEPAM. [Concomitant]
     Active Substance: CLONAZEPAM
     Indication: DEPRESSION
  20. ALENDRONATE [Concomitant]
     Active Substance: ALENDRONATE SODIUM
     Dosage: UNK
  21. Z-PACK [Concomitant]
     Active Substance: AZITHROMYCIN DIHYDRATE
     Dosage: UNK
  22. MIRAPEX [Concomitant]
     Active Substance: PRAMIPEXOLE DIHYDROCHLORIDE
     Indication: RESTLESS LEGS SYNDROME
     Dosage: UNK
  23. SINGULAIR [Concomitant]
     Active Substance: MONTELUKAST SODIUM
     Dosage: UNK
  24. DECADRON [Concomitant]
     Active Substance: DEXAMETHASONE
     Dosage: UNK
  25. COUMADIN [Concomitant]
     Active Substance: WARFARIN SODIUM
     Dosage: UNK
  26. OS-CAL + D [Concomitant]
     Dosage: UNK
  27. TYLENOL [Concomitant]
     Active Substance: ACETAMINOPHEN
     Dosage: UNK
  28. PROLASTIN [Concomitant]
     Active Substance: .ALPHA.1-PROTEINASE INHIBITOR HUMAN
  29. OXYCET [Concomitant]
     Active Substance: ACETAMINOPHEN\OXYCODONE HYDROCHLORIDE
     Indication: PAIN
     Dosage: UNK
     Dates: start: 2008
  30. PERCOCET [Concomitant]
     Active Substance: ACETAMINOPHEN\OXYCODONE HYDROCHLORIDE
  31. PROVENTIL [Concomitant]
     Active Substance: ALBUTEROL
     Dosage: UNK
  32. PREDNISONE. [Concomitant]
     Active Substance: PREDNISONE
     Dosage: 60 MG, DAILY
  33. SOLU-MEDROL [Concomitant]
     Active Substance: METHYLPREDNISOLONE SODIUM SUCCINATE
     Dosage: UNK
  34. NOVOLOG [Concomitant]
     Active Substance: INSULIN ASPART
     Dosage: UNK
  35. LIPITOR [Suspect]
     Active Substance: ATORVASTATIN CALCIUM
     Dosage: UNK
  36. EFFIENT [Concomitant]
     Active Substance: PRASUGREL HYDROCHLORIDE
     Indication: COAGULATION TIME SHORTENED
     Dosage: UNK
     Dates: start: 2015
  37. LASIX [Concomitant]
     Active Substance: FUROSEMIDE
     Dosage: UNK
  38. PROLIA [Concomitant]
     Active Substance: DENOSUMAB
     Indication: BONE DENSITY DECREASED
     Dosage: UNK
     Dates: start: 2008
  39. ZOSYN [Concomitant]
     Active Substance: PIPERACILLIN SODIUM\TAZOBACTAM SODIUM
     Dosage: UNK
  40. RESTORIL [Concomitant]
     Active Substance: TEMAZEPAM
  41. THEO-DUR [Concomitant]
     Active Substance: THEOPHYLLINE ANHYDROUS
     Dosage: UNK
  42. ALBUTEROL. [Concomitant]
     Active Substance: ALBUTEROL
     Dosage: UNK
  43. DESYREL [Concomitant]
     Active Substance: TRAZODONE HYDROCHLORIDE
     Dosage: UNK
  44. PULMICORT TURBUHALER [Concomitant]
     Active Substance: BUDESONIDE
     Dosage: UNK
  45. AMBIEN [Concomitant]
     Active Substance: ZOLPIDEM TARTRATE
     Dosage: UNK
  46. KLONOPIN [Concomitant]
     Active Substance: CLONAZEPAM
     Dosage: UNK
  47. AUGMENTIN [Concomitant]
     Active Substance: AMOXICILLIN\CLAVULANATE POTASSIUM
  48. VICODIN [Concomitant]
     Active Substance: ACETAMINOPHEN\HYDROCODONE BITARTRATE
  49. LOVENOX [Concomitant]
     Active Substance: ENOXAPARIN SODIUM
     Dosage: UNK

REACTIONS (42)
  - Chronic obstructive pulmonary disease [Recovered/Resolved]
  - Hyperhidrosis [Unknown]
  - Chills [Unknown]
  - Pulmonary fibrosis [Unknown]
  - Peripheral swelling [Unknown]
  - Pain in extremity [Unknown]
  - Conjunctivitis [Unknown]
  - Bronchospasm [Unknown]
  - Bronchitis [Unknown]
  - Headache [Unknown]
  - Anxiety disorder [Unknown]
  - Tendonitis [Unknown]
  - Rash [Unknown]
  - Fatigue [Unknown]
  - Dyspnoea [Unknown]
  - Diabetes mellitus [Unknown]
  - Pneumonia [Unknown]
  - Thrombosis [Unknown]
  - Neuropathy peripheral [Unknown]
  - Oedema peripheral [Unknown]
  - Cough [Unknown]
  - Muscle spasms [Unknown]
  - Chronic obstructive pulmonary disease [Unknown]
  - Organising pneumonia [Unknown]
  - Sinobronchitis [Unknown]
  - Sinusitis [Unknown]
  - Alpha-1 anti-trypsin deficiency [Unknown]
  - Low density lipoprotein increased [Unknown]
  - Wheezing [Unknown]
  - Chronic obstructive pulmonary disease [Unknown]
  - Chronic obstructive pulmonary disease [Unknown]
  - Gastrooesophageal reflux disease [Unknown]
  - Heart rate increased [Unknown]
  - Abdominal pain upper [Unknown]
  - Pyrexia [Unknown]
  - Nausea [Unknown]
  - Acute sinusitis [Unknown]
  - Pulmonary embolism [Unknown]
  - Sputum purulent [Unknown]
  - Restless legs syndrome [Unknown]
  - Folliculitis [Unknown]
  - International normalised ratio increased [Unknown]

NARRATIVE: CASE EVENT DATE: 2009
